FAERS Safety Report 5370948-2 (Version None)
Quarter: 2007Q2

REPORT INFORMATION
  Report Type: 
  Country: None (occurrence: None)
  Receive Date: 20070626
  Receipt Date: 20070614
  Transmission Date: 20071010
  Serious: Yes (Other)
  Sender: FDA-Public Use
  Company Number: US-PFIZER INC-2007048977

PATIENT
  Sex: Male
  Weight: 89.545 kg

DRUGS (2)
  1. DILANTIN [Suspect]
     Indication: EPILEPSY
     Dates: start: 19470101, end: 20070401
  2. PHENOBARBITAL TAB [Concomitant]

REACTIONS (4)
  - BODY HEIGHT DECREASED [None]
  - FRACTURE [None]
  - JOINT INJURY [None]
  - OSTEOPOROSIS [None]
